FAERS Safety Report 10990283 (Version 1)
Quarter: 2015Q1

REPORT INFORMATION
  Report Type: Spontaneous
  Country: US (occurrence: None)
  Receive Date: 20150226
  Receipt Date: 20150226
  Transmission Date: 20150721
  Serious: Yes (Other)
  Sender: FDA-Public Use
  Company Number: TPA2012A01307

PATIENT
  Age: 63 Year
  Sex: Male
  Weight: 113.4 kg

DRUGS (12)
  1. GLUCOPHAGE [Concomitant]
     Active Substance: METFORMIN HYDROCHLORIDE
  2. LISPRO (INSULIN LISPRO) [Concomitant]
  3. FOSINOPRIL (FOSINOPRIL) [Concomitant]
  4. AVANDIA (ROSIGLITAZONE MALEATE) [Concomitant]
  5. GLARGINE (INSULIN GLARGINE) [Concomitant]
  6. FUROSEMIDE (FUROSEMIDE) [Concomitant]
     Active Substance: FUROSEMIDE
  7. FELODIPINE (FELODIPINE) [Concomitant]
     Active Substance: FELODIPINE
  8. CLOPIDOGREL BISULFATE. [Concomitant]
     Active Substance: CLOPIDOGREL BISULFATE
  9. BYETTA (EXENATIDE) [Concomitant]
  10. ACTOS [Suspect]
     Active Substance: PIOGLITAZONE HYDROCHLORIDE
     Indication: TYPE 2 DIABETES MELLITUS
     Dates: start: 200404, end: 200408
  11. DUTASTERIDE. [Suspect]
     Active Substance: DUTASTERIDE
  12. HUMALOG [Concomitant]
     Active Substance: INSULIN LISPRO

REACTIONS (3)
  - Bladder cancer [None]
  - Urinary tract infection [None]
  - Cystitis [None]

NARRATIVE: CASE EVENT DATE: 200709
